FAERS Safety Report 7420796-4 (Version None)
Quarter: 2011Q2

REPORT INFORMATION
  Report Type: 
  Country: None (occurrence: None)
  Receive Date: 20110418
  Receipt Date: 20110408
  Transmission Date: 20111010
  Serious: Yes (Death, Life-Threatening)
  Sender: FDA-Public Use
  Company Number: DE-TEVA-273399GER

PATIENT
  Age: 52 Year
  Sex: Female
  Weight: 89 kg

DRUGS (8)
  1. POSACONAZOLE [Concomitant]
     Dosage: 300 MILLIGRAM;
     Route: 042
     Dates: start: 20110302
  2. MSI [Concomitant]
     Route: 042
     Dates: start: 20110304
  3. TRETINOIN [Suspect]
     Indication: ACUTE MYELOID LEUKAEMIA
     Route: 042
     Dates: start: 20110228
  4. ETOPOSIDE [Suspect]
     Indication: ACUTE MYELOID LEUKAEMIA
     Route: 042
     Dates: start: 20110223, end: 20110225
  5. ZAVEDOS [Suspect]
     Indication: ACUTE MYELOID LEUKAEMIA
     Route: 042
     Dates: start: 20110223, end: 20110227
  6. GEMTUZUMAB OZOGAMICIN [Suspect]
     Indication: ACUTE MYELOID LEUKAEMIA
     Route: 042
     Dates: start: 20110223, end: 20110223
  7. CYTARABINE [Suspect]
     Indication: ACUTE MYELOID LEUKAEMIA
     Route: 042
     Dates: start: 20110223, end: 20110301
  8. POSACONAZOLE [Concomitant]
     Dosage: 600 MILLIGRAM;
     Route: 042
     Dates: start: 20110301, end: 20110301

REACTIONS (1)
  - SEPSIS [None]
